FAERS Safety Report 5485639-7 (Version None)
Quarter: 2007Q4

REPORT INFORMATION
  Report Type: 
  Country: None (occurrence: None)
  Receive Date: 20071011
  Receipt Date: 20071002
  Transmission Date: 20080405
  Serious: Yes (Death, Hospitalization)
  Sender: FDA-Public Use
  Company Number: TAP2007Q01224

PATIENT
  Age: 80 Year
  Sex: Male

DRUGS (11)
  1. LUPRON DEPOT-4 [Suspect]
     Indication: PROSTATE CANCER
     Dosage: 30 MG, 1 IN 4 M, INTRAMUSCULAR
     Route: 030
     Dates: start: 20060605
  2. ASPIRIN [Concomitant]
  3. ALTACE [Concomitant]
  4. COUMADIN [Concomitant]
  5. CRESTOR [Concomitant]
  6. IMDUR [Concomitant]
  7. NORVASC [Concomitant]
  8. ATENOLOL [Concomitant]
  9. PREVACID [Concomitant]
  10. SODIUM POLYSTYRENE SULFONATE (SODIUM POLYSTYRENE SULFONATE) [Concomitant]
  11. SYNTHROID (LEVOTYHROXINE SODIUM) [Concomitant]

REACTIONS (5)
  - ABDOMINAL PAIN [None]
  - ANAEMIA [None]
  - CARDIAC FAILURE CONGESTIVE [None]
  - HAEMATEMESIS [None]
  - MYOCARDIAL INFARCTION [None]
